FAERS Safety Report 26047270 (Version 2)
Quarter: 2025Q4

REPORT INFORMATION
  Report Type: Report from Study
  Country: US (occurrence: US)
  Receive Date: 20251114
  Receipt Date: 20251205
  Transmission Date: 20260118
  Serious: No
  Sender: MARINUS PHARMACEUTICALS
  Company Number: US-MARINUS PHARMACEUTICALS, INC.-MAR2025000276

PATIENT

DRUGS (1)
  1. GANAXOLONE [Suspect]
     Active Substance: GANAXOLONE
     Dosage: 8 MILLIGRAM, TID
     Route: 048

REACTIONS (1)
  - Drug ineffective [Unknown]
